FAERS Safety Report 11145458 (Version 1)
Quarter: 2015Q2

REPORT INFORMATION
  Report Type: Spontaneous
  Country: US (occurrence: US)
  Receive Date: 20150526
  Receipt Date: 20150526
  Transmission Date: 20150821
  Serious: Yes (Other)
  Sender: FDA-Public Use
  Company Number: US-PFIZER INC-2015171154

PATIENT
  Age: 64 Year
  Sex: Female
  Weight: 114 kg

DRUGS (2)
  1. VESICARE [Concomitant]
     Active Substance: SOLIFENACIN SUCCINATE
     Dosage: 5 MG, 1X/DAY
  2. LYRICA [Suspect]
     Active Substance: PREGABALIN
     Indication: NERVE COMPRESSION
     Dosage: UNK
     Dates: start: 20140709

REACTIONS (5)
  - Pain [Unknown]
  - Arthritis [Unknown]
  - Spinal fracture [Unknown]
  - Gait disturbance [Unknown]
  - Back pain [Unknown]
